FAERS Safety Report 5340213-8 (Version None)
Quarter: 2007Q2

REPORT INFORMATION
  Report Type: 
  Country: None (occurrence: None)
  Receive Date: 20070531
  Receipt Date: 20070525
  Transmission Date: 20071010
  Serious: Yes (Hospitalization)
  Sender: FDA-Public Use
  Company Number: US-BAYER-200712963GDS

PATIENT
  Age: 63 Year
  Sex: Male

DRUGS (4)
  1. DACARBAZINE [Suspect]
     Indication: MALIGNANT MELANOMA
     Route: 042
     Dates: start: 20070417, end: 20070417
  2. IPILUMUMAB OR PLACEBO [Suspect]
     Indication: MALIGNANT MELANOMA
     Route: 042
     Dates: start: 20070417, end: 20070417
  3. ENOXAPARIN SODIUM [Concomitant]
     Indication: DRUG USE FOR UNKNOWN INDICATION
     Route: 065
     Dates: start: 20070502, end: 20070511
  4. PANTORC [Concomitant]
     Indication: DRUG USE FOR UNKNOWN INDICATION

REACTIONS (2)
  - AUTOIMMUNE HEPATITIS [None]
  - LOBAR PNEUMONIA [None]
